FAERS Safety Report 20592783 (Version 1)
Quarter: 2022Q1

REPORT INFORMATION
  Report Type: Report from Study
  Country: KR (occurrence: KR)
  Receive Date: 20220315
  Receipt Date: 20220315
  Transmission Date: 20220423
  Serious: Yes (Other)
  Sender: FDA-Public Use
  Company Number: KR-SUN PHARMACEUTICAL INDUSTRIES LTD-2022RR-329792

PATIENT
  Age: 59 Year
  Sex: Female

DRUGS (2)
  1. OXALIPLATIN [Suspect]
     Active Substance: OXALIPLATIN
     Indication: Colorectal cancer
     Dosage: 130 MILLIGRAM/SQ. METER, 1 DOSE/3 WEEKS, ON DAY 1, 1880 MG IN TOTAL
     Route: 042
  2. CAPECITABINE [Suspect]
     Active Substance: CAPECITABINE
     Indication: Colorectal cancer
     Dosage: 2000 MILLIGRAM/SQ. METER, DAILY, ON DAYS 1 TO 14, EVERY 3 WEEKS
     Route: 065

REACTIONS (1)
  - Portal hypertension [Unknown]
